FAERS Safety Report 9413662 (Version 1)
Quarter: 2013Q3

REPORT INFORMATION
  Report Type: Spontaneous
  Country: US (occurrence: US)
  Receive Date: 20130722
  Receipt Date: 20130722
  Transmission Date: 20140515
  Serious: Yes (Other)
  Sender: FDA-Public Use
  Company Number: US-RB-056316-13

PATIENT
  Age: 26 Year
  Sex: Female

DRUGS (10)
  1. SUBOXONE TABLET [Suspect]
     Indication: DRUG DEPENDENCE
     Route: 060
     Dates: start: 201203, end: 201209
  2. SUBOXONE TABLET [Suspect]
     Dosage: RELAPSED ON HEROIN FOR 2 WEEKS, ALSO TOOK SUBOXONE DURING THAT TIME, UNKNOWN DOSING DETAILS
     Route: 060
     Dates: start: 201209, end: 201209
  3. SUBOXONE TABLET [Suspect]
     Route: 060
     Dates: start: 201209
  4. HEROIN [Suspect]
     Indication: PRODUCT USED FOR UNKNOWN INDICATION
     Dosage: UNKNOWN DOSING DETAILS
     Route: 042
     Dates: start: 201209, end: 201209
  5. NICOTINE [Suspect]
     Indication: NICOTINE DEPENDENCE
     Dosage: ONE PACK OF CIGARETTES DAILY
     Route: 055
  6. VITAMINS [Concomitant]
     Indication: PREGNANCY
     Dosage: DOSING DETAILS UNKNOWN
     Route: 065
     Dates: start: 201203
  7. VALTREX [Concomitant]
     Indication: HERPES VIRUS INFECTION
     Dosage: DOSING DETAILS UNKNOWN
     Route: 048
  8. IMITREX [Concomitant]
     Indication: MIGRAINE
     Dosage: DOSING DETAILS UNKNOWN
     Route: 065
  9. NEXIUM [Concomitant]
     Indication: DYSPEPSIA
     Dosage: DOSING DETAILS UNKNOWN
     Route: 048
  10. SEROQUEL [Concomitant]
     Indication: SLEEP DISORDER
     Dosage: DOSING DETAILS UNKNOWN
     Route: 065

REACTIONS (3)
  - Exposure during pregnancy [Recovered/Resolved]
  - Umbilical cord abnormality [Recovered/Resolved]
  - Drug dependence [Recovered/Resolved]
